FAERS Safety Report 4270170-7 (Version None)
Quarter: 2004Q1

REPORT INFORMATION
  Report Type: 
  Country: None (occurrence: None)
  Receive Date: 20040114
  Receipt Date: 20030625
  Transmission Date: 20041129
  Serious: No
  Sender: FDA-Public Use
  Company Number: US-GLAXOSMITHKLINE-A0413934A

PATIENT
  Age: 38 Year
  Sex: Female

DRUGS (1)
  1. WELLBUTRIN [Suspect]
     Indication: WEIGHT DECREASED
     Dosage: 200MG TWICE PER DAY
     Route: 048
     Dates: start: 20030101

REACTIONS (2)
  - POLYMENORRHOEA [None]
  - RASH [None]
